FAERS Safety Report 9916083 (Version 2)
Quarter: 2014Q1

REPORT INFORMATION
  Report Type: Spontaneous
  Country: JP (occurrence: JP)
  Receive Date: 20140221
  Receipt Date: 20140228
  Transmission Date: 20141002
  Serious: Yes (Death)
  Sender: FDA-Public Use
  Company Number: JP-MERCK-1402JPN009495

PATIENT
  Age: 80 Year
  Sex: Female

DRUGS (8)
  1. GLACTIV [Suspect]
     Indication: TYPE 2 DIABETES MELLITUS
     Dosage: 50 MG, QD
     Route: 048
     Dates: start: 20130629
  2. OLMETEC [Concomitant]
     Dosage: UNK
  3. AMLODIN (AMLODIPINE BESYLATE) [Concomitant]
     Dosage: UNK
  4. HALFDIGOXIN [Concomitant]
     Dosage: UNK
  5. SUNRYTHM [Concomitant]
     Dosage: UNK
  6. POTASSIUM ASPARTATE [Concomitant]
     Dosage: UNK
  7. BAYASPIRIN [Concomitant]
     Dosage: UNK
  8. FEBURIC [Concomitant]
     Dosage: UNK

REACTIONS (1)
  - Sudden death [Fatal]
